FAERS Safety Report 6420255-1 (Version None)
Quarter: 2009Q4

REPORT INFORMATION
  Report Type: 
  Country: None (occurrence: None)
  Receive Date: 20091029
  Receipt Date: 20091022
  Transmission Date: 20100525
  Serious: Yes (Hospitalization)
  Sender: FDA-Public Use
  Company Number: PHHO2006DE17274

PATIENT
  Sex: Male
  Weight: 99 kg

DRUGS (4)
  1. AMN107 AMN+CAP [Suspect]
     Indication: SYSTEMIC MASTOCYTOSIS
     Dosage: 800 MG, QD
     Route: 048
     Dates: start: 20050901
  2. RAMIPRIL [Concomitant]
     Indication: HYPERTENSION
  3. REVLIMID [Concomitant]
     Indication: MYELODYSPLASTIC SYNDROME
  4. NOVALGIN [Concomitant]

REACTIONS (10)
  - BACK PAIN [None]
  - DISEASE PROGRESSION [None]
  - DRUG INEFFECTIVE [None]
  - HYPOTENSION [None]
  - LOSS OF CONSCIOUSNESS [None]
  - MALAISE [None]
  - SPINAL COMPRESSION FRACTURE [None]
  - SWEATING FEVER [None]
  - SYNCOPE [None]
  - TRYPTASE INCREASED [None]
